FAERS Safety Report 7860336-9 (Version None)
Quarter: 2011Q4

REPORT INFORMATION
  Report Type: 
  Country: None (occurrence: None)
  Receive Date: 20111026
  Receipt Date: 20111020
  Transmission Date: 20120403
  Serious: Yes (Other)
  Sender: FDA-Public Use
  Company Number: AUR-APL-2011-05544

PATIENT
  Age: 42 Year
  Sex: Female
  Weight: 63.49 kg

DRUGS (4)
  1. AMITRIPTYLINE HCL [Concomitant]
  2. HYDROCHLOROTHIAZIDE [Suspect]
     Indication: HYPERTENSION
     Dosage: (50 MG, 1 D)
  3. BENAZEPRIL HYDROCHLORIDE [Suspect]
     Indication: HYPERTENSION
  4. LIPITOR [Suspect]
     Indication: BLOOD CHOLESTEROL INCREASED
     Dosage: (20 MG, 1 D) : (40 MG,1 D)
     Dates: start: 20010101

REACTIONS (2)
  - MULTIPLE SCLEROSIS [None]
  - BLOOD PRESSURE DECREASED [None]
